FAERS Safety Report 7970562-6 (Version None)
Quarter: 2011Q4

REPORT INFORMATION
  Report Type: 
  Country: None (occurrence: None)
  Receive Date: 20111212
  Receipt Date: 20111205
  Transmission Date: 20120403
  Serious: Yes (Hospitalization)
  Sender: FDA-Public Use
  Company Number: US-GILEAD-2011-0047330

PATIENT
  Sex: Female

DRUGS (11)
  1. LANTUS [Concomitant]
     Indication: DIABETES MELLITUS
  2. PROTONIX [Concomitant]
     Indication: GASTROOESOPHAGEAL REFLUX DISEASE
  3. PAXIL [Concomitant]
  4. LASIX [Concomitant]
  5. REVATIO [Concomitant]
     Indication: PULMONARY ARTERIAL HYPERTENSION
  6. LETAIRIS [Suspect]
     Indication: PULMONARY HYPERTENSION
     Dosage: 10 MG, UNK
     Route: 048
     Dates: start: 20110113
  7. CALCIUM CARBONATE [Concomitant]
  8. SYNTHROID [Concomitant]
     Indication: HYPOTHYROIDISM
  9. HYDROCHLOROTHIAZIDE W/QUINAPRIL HYDROCHLORIDE [Concomitant]
  10. REMODULIN [Concomitant]
     Indication: PULMONARY ARTERIAL HYPERTENSION
  11. WARFARIN SODIUM [Concomitant]

REACTIONS (3)
  - ATRIAL FLUTTER [None]
  - PULMONARY OEDEMA [None]
  - ANAEMIA [None]
